FAERS Safety Report 8887050 (Version 5)
Quarter: 2013Q1

REPORT INFORMATION
  Report Type: Report from Study
  Country: US (occurrence: US)
  Receive Date: 20121105
  Receipt Date: 20130311
  Transmission Date: 20140127
  Serious: Yes (Other)
  Sender: FDA-Public Use
  Company Number: US-JNJFOC-20121101456

PATIENT
  Age: 42 Year
  Sex: Male

DRUGS (2)
  1. REMICADE [Suspect]
     Indication: COLITIS ULCERATIVE
     Route: 042
     Dates: end: 20111101
  2. LIALDA [Concomitant]
     Indication: COLITIS ULCERATIVE
     Dosage: DATES: CONTINUAL FOR MANY YEARS

REACTIONS (1)
  - Lymphoma cutis [Recovering/Resolving]
